FAERS Safety Report 6037401-4 (Version None)
Quarter: 2009Q1

REPORT INFORMATION
  Report Type: 
  Country: None (occurrence: None)
  Receive Date: 20090114
  Receipt Date: 20090105
  Transmission Date: 20090719
  Serious: Yes (Other)
  Sender: FDA-Public Use
  Company Number: AU-PFIZER INC-2008158037

PATIENT

DRUGS (3)
  1. CELEBREX [Suspect]
     Indication: ARTHRITIS
  2. VOLTAREN [Suspect]
     Dosage: 150 MG, UNK
     Dates: start: 20060715, end: 20060715
  3. DICLOFENAC POTASSIUM [Suspect]
     Dosage: UNK

REACTIONS (1)
  - RETINOPATHY [None]
